FAERS Safety Report 8948988 (Version 1)
Quarter: 2012Q4

REPORT INFORMATION
  Report Type: 
  Country: US (occurrence: US)
  Receive Date: 20121206
  Receipt Date: 20121206
  Transmission Date: 20130627
  Serious: No
  Sender: FDA-Public Use
  Company Number: US-PFIZER INC-2012305736

PATIENT
  Age: 45 Year
  Sex: Female
  Weight: 53.06 kg

DRUGS (3)
  1. CELEBREX [Suspect]
     Indication: OSTEOARTHRITIS
     Dosage: 200 mg, 2x/day
     Route: 048
     Dates: start: 20121203
  2. LYRICA [Suspect]
     Indication: ARTHRITIC-LIKE PAIN
     Dosage: 50 mg, 2x/day
     Route: 048
     Dates: start: 20121203
  3. MICROGESTIN [Concomitant]
     Indication: BIRTH CONTROL
     Dosage: 1.5/30 mg, UNK

REACTIONS (4)
  - Incorrect dose administered [Unknown]
  - Off label use [Unknown]
  - Drug ineffective [Unknown]
  - Drug ineffective for unapproved indication [Unknown]
